FAERS Safety Report 4703146-3 (Version None)
Quarter: 2005Q2

REPORT INFORMATION
  Report Type: 
  Country: None (occurrence: None)
  Receive Date: 20050629
  Receipt Date: 20050627
  Transmission Date: 20051028
  Serious: Yes (Hospitalization)
  Sender: FDA-Public Use
  Company Number: MAI-01-101

PATIENT
  Age: 63 Year
  Sex: Female
  Weight: 97.8 kg

DRUGS (7)
  1. QUILONUM RETARD [Suspect]
     Dosage: 900MG PER DAY
     Route: 048
  2. TEGRETOL [Suspect]
     Dosage: 600MG PER DAY
     Route: 048
  3. ZYPREXA [Suspect]
     Dosage: 20MG PER DAY
     Route: 048
     Dates: start: 20041021
  4. TAVOR [Suspect]
     Route: 048
     Dates: start: 20041016
  5. DIOVAN [Concomitant]
     Dosage: 80MG PER DAY
     Route: 048
     Dates: start: 20041016
  6. NATRILIX [Concomitant]
     Dosage: 1TAB PER DAY
     Route: 048
     Dates: start: 20041016
  7. ACTRAPID [Concomitant]
     Route: 065

REACTIONS (5)
  - COORDINATION ABNORMAL [None]
  - DYSARTHRIA [None]
  - FALL [None]
  - RESTLESSNESS [None]
  - SEDATION [None]
